FAERS Safety Report 21790386 (Version 1)
Quarter: 2022Q4

REPORT INFORMATION
  Report Type: Report from Study
  Country: US (occurrence: US)
  Receive Date: 20221228
  Receipt Date: 20221228
  Transmission Date: 20230112
  Serious: Yes (Other)
  Sender: FDA-Public Use
  Company Number: US-CLOVIS ONCOLOGY-CLO-2021-001941

PATIENT
  Sex: Female

DRUGS (4)
  1. RUBRACA [Suspect]
     Active Substance: RUCAPARIB CAMSYLATE
     Indication: Ovarian cancer
     Dosage: 300 MG MORNING, 600 MG EVENING
     Route: 048
     Dates: start: 20191023
  2. RUBRACA [Suspect]
     Active Substance: RUCAPARIB CAMSYLATE
     Dosage: 300 MG AM/600 MG PM
     Route: 048
     Dates: start: 20191023
  3. RUBRACA [Suspect]
     Active Substance: RUCAPARIB CAMSYLATE
     Dosage: 300 MG AM/600 MG PM
     Route: 048
     Dates: start: 20191023, end: 202208
  4. PROTONIX [Concomitant]
     Active Substance: PANTOPRAZOLE SODIUM
     Indication: Product used for unknown indication

REACTIONS (5)
  - Ovarian cancer recurrent [Recovering/Resolving]
  - Scan abnormal [Not Recovered/Not Resolved]
  - Feeling cold [Unknown]
  - Paraesthesia [Unknown]
  - Fatigue [Unknown]
